FAERS Safety Report 13490011 (Version 1)
Quarter: 2017Q2

REPORT INFORMATION
  Report Type: Spontaneous
  Country: US (occurrence: US)
  Receive Date: 20170426
  Receipt Date: 20170426
  Transmission Date: 20170830
  Serious: No
  Sender: FDA-Public Use
  Company Number: US-AMGEN-USASP2017059548

PATIENT
  Age: 62 Year
  Sex: Female

DRUGS (1)
  1. ENBREL [Suspect]
     Active Substance: ETANERCEPT
     Indication: RHEUMATOID ARTHRITIS
     Dosage: 50 MG, QWK
     Route: 065
     Dates: start: 20170405

REACTIONS (4)
  - Visual acuity reduced [Unknown]
  - Injection site urticaria [Not Recovered/Not Resolved]
  - Fatigue [Recovering/Resolving]
  - Influenza like illness [Unknown]

NARRATIVE: CASE EVENT DATE: 201704
